FAERS Safety Report 14949451 (Version 1)
Quarter: 2018Q2

REPORT INFORMATION
  Report Type: Other
  Country: US (occurrence: US)
  Receive Date: 20180529
  Receipt Date: 20180529
  Transmission Date: 20180711
  Serious: Yes (Hospitalization)
  Sender: FDA-Public Use
  Company Number: US-CVS-2048616

PATIENT
  Sex: Female

DRUGS (1)
  1. SENNA PLUS [Suspect]
     Active Substance: DOCUSATE SODIUM\SENNOSIDES\SENNOSIDES A AND B

REACTIONS (6)
  - Fatigue [Unknown]
  - Dizziness [Unknown]
  - Product commingling [None]
  - Laceration [Unknown]
  - Loss of consciousness [Unknown]
  - Wrong drug administered [None]
